FAERS Safety Report 16011189 (Version 1)
Quarter: 2019Q1

REPORT INFORMATION
  Report Type: Spontaneous
  Country: US (occurrence: US)
  Receive Date: 20190227
  Receipt Date: 20190227
  Transmission Date: 20190418
  Serious: Yes (Hospitalization, Other)
  Sender: FDA-Public Use
  Company Number: US-NALPROPION PHARMACEUTICALS INC.-2019-006632

PATIENT

DRUGS (2)
  1. CONTRAVE [Suspect]
     Active Substance: BUPROPION HYDROCHLORIDE\NALTREXONE HYDROCHLORIDE
     Dosage: TWO TABLETS IN AM/ TWO TABLETS IN PM
     Route: 048
     Dates: start: 20170818, end: 20170831
  2. CONTRAVE [Suspect]
     Active Substance: BUPROPION HYDROCHLORIDE\NALTREXONE HYDROCHLORIDE
     Indication: OBESITY
     Dosage: UNKNOWN
     Route: 065
     Dates: start: 20170727

REACTIONS (11)
  - Inflammation [Unknown]
  - Pneumonia [Unknown]
  - Seasonal allergy [Unknown]
  - Hypertension [Unknown]
  - Bronchospasm [Unknown]
  - Urticaria [Recovered/Resolved]
  - Rash [Unknown]
  - Influenza like illness [Unknown]
  - Asthma [Unknown]
  - Chills [Unknown]
  - Food allergy [Unknown]

NARRATIVE: CASE EVENT DATE: 20170831
